FAERS Safety Report 9675163 (Version 1)
Quarter: 2013Q4

REPORT INFORMATION
  Report Type: Spontaneous
  Country: CA (occurrence: US)
  Receive Date: 20131107
  Receipt Date: 20131107
  Transmission Date: 20140711
  Serious: No
  Sender: FDA-Public Use
  Company Number: US-TEVA-442671USA

PATIENT
  Sex: Male
  Weight: 77.5 kg

DRUGS (5)
  1. TREANDA [Suspect]
     Indication: HODGKIN^S DISEASE MIXED CELLULARITY STAGE UNSPECIFIED
     Dates: start: 201306
  2. RITUXIMAB [Suspect]
  3. VITAMIN D [Concomitant]
  4. MULTIVITAMIN [Concomitant]
  5. FLONASE [Concomitant]
     Indication: UPPER-AIRWAY COUGH SYNDROME

REACTIONS (1)
  - Dyspnoea [Recovering/Resolving]
